APPROVED DRUG PRODUCT: PALIPERIDONE
Active Ingredient: PALIPERIDONE
Strength: 6MG
Dosage Form/Route: TABLET, EXTENDED RELEASE;ORAL
Application: A208643 | Product #003
Applicant: LUPIN LTD
Approved: Jun 29, 2022 | RLD: No | RS: No | Type: DISCN